FAERS Safety Report 13207248 (Version 1)
Quarter: 2017Q1

REPORT INFORMATION
  Report Type: Spontaneous
  Country: US (occurrence: US)
  Receive Date: 20170209
  Receipt Date: 20170209
  Transmission Date: 20170428
  Serious: Yes (Disabling, Other)
  Sender: FDA-Public Use
  Company Number: None

PATIENT
  Age: 17 Year
  Sex: Female
  Weight: 54 kg

DRUGS (5)
  1. PREDNISONE 5 MG [Suspect]
     Active Substance: PREDNISONE
     Indication: SINUSITIS
     Dosage: ?          QUANTITY:10 TABLET(S);?
     Route: 048
  2. MUCINEX [Concomitant]
     Active Substance: GUAIFENESIN
  3. PREDNISONE 5 MG [Suspect]
     Active Substance: PREDNISONE
     Indication: INFLAMMATION
     Dosage: ?          QUANTITY:10 TABLET(S);?
     Route: 048
  4. FOCALIN XR [Concomitant]
     Active Substance: DEXMETHYLPHENIDATE HYDROCHLORIDE
  5. LORATADINE. [Concomitant]
     Active Substance: LORATADINE

REACTIONS (6)
  - Psychotic disorder [None]
  - Epistaxis [None]
  - Paranoia [None]
  - Anxiety [None]
  - Energy increased [None]
  - Palpitations [None]

NARRATIVE: CASE EVENT DATE: 20110920
